FAERS Safety Report 15698693 (Version 3)
Quarter: 2019Q1

REPORT INFORMATION
  Report Type: Spontaneous
  Country: DE (occurrence: DE)
  Receive Date: 20181207
  Receipt Date: 20190111
  Transmission Date: 20190417
  Serious: Yes (Other)
  Sender: FDA-Public Use
  Company Number: DE-ACCORD-095136

PATIENT
  Sex: Male

DRUGS (2)
  1. MITOMYCIN. [Suspect]
     Active Substance: MITOMYCIN
     Indication: PRODUCT USED FOR UNKNOWN INDICATION
     Dosage: INITIATION THERAPY WITH 8 INSTILLATIONS
     Route: 043
     Dates: start: 20160530, end: 20160721
  2. INSULIN [Concomitant]
     Active Substance: INSULIN NOS
     Dates: start: 2004

REACTIONS (4)
  - Albumin urine present [Unknown]
  - Blood creatinine increased [Not Recovered/Not Resolved]
  - Cells in urine [Not Recovered/Not Resolved]
  - Renal failure [Not Recovered/Not Resolved]

NARRATIVE: CASE EVENT DATE: 2016
